FAERS Safety Report 8092737-0 (Version None)
Quarter: 2012Q1

REPORT INFORMATION
  Report Type: 
  Country: None (occurrence: None)
  Receive Date: 20120128
  Receipt Date: 20110804
  Transmission Date: 20120608
  Serious: No
  Sender: FDA-Public Use
  Company Number: US-ABBOTT-11P-163-0844093-00

PATIENT
  Age: 53 Year
  Sex: Male

DRUGS (5)
  1. LAMICTAL [Concomitant]
     Indication: CONVULSION PROPHYLAXIS
  2. DILANTIN [Concomitant]
     Indication: CONVULSION
  3. PREDNISONE TAB [Concomitant]
     Indication: CROHN'S DISEASE
     Dosage: 5MG ALTERNATING WITH 7.5MG DAILY, TAPERING DOSE
  4. LEXAPRO [Concomitant]
     Indication: DRUG THERAPY
  5. HUMIRA [Suspect]
     Indication: CROHN'S DISEASE
     Dates: start: 20110201

REACTIONS (5)
  - INJECTION SITE PAIN [None]
  - PYREXIA [None]
  - ARTHRALGIA [None]
  - INJECTION SITE NODULE [None]
  - BONE PAIN [None]
